FAERS Safety Report 14834489 (Version 2)
Quarter: 2019Q2

REPORT INFORMATION
  Report Type: Spontaneous
  Country: US (occurrence: US)
  Receive Date: 20180501
  Receipt Date: 20190530
  Transmission Date: 20190711
  Serious: No
  Sender: FDA-Public Use
  Company Number: US-PERRIGO-17US030132

PATIENT
  Sex: Female

DRUGS (5)
  1. TRIAMCINOLONE ACETONIDE. [Suspect]
     Active Substance: TRIAMCINOLONE ACETONIDE
     Dosage: 1 APPLICATION, PRN
     Dates: start: 201711, end: 201807
  2. TRIAMCINOLONE ACETONIDE. [Suspect]
     Active Substance: TRIAMCINOLONE ACETONIDE
     Indication: PRURITUS
     Dosage: 1 APPLICATION, UNKNOWN
     Route: 061
     Dates: start: 2016, end: 2017
  3. TRIAMCINOLONE ACETONIDE. [Suspect]
     Active Substance: TRIAMCINOLONE ACETONIDE
     Indication: SKIN BURNING SENSATION
     Dosage: 1 APPLICATION, UNKNOWN
     Route: 061
     Dates: start: 201709
  4. TRIAMCINOLONE ACETONIDE. [Suspect]
     Active Substance: TRIAMCINOLONE ACETONIDE
     Indication: RASH
     Dosage: 1 APPLICATION, PRN
     Dates: start: 2016, end: 201703
  5. TRIAMCINOLONE ACETONIDE. [Suspect]
     Active Substance: TRIAMCINOLONE ACETONIDE
     Dosage: 1 APPLICATION, PRN
     Dates: start: 201711, end: 20180518

REACTIONS (2)
  - Condition aggravated [Recovering/Resolving]
  - Drug ineffective [Unknown]

NARRATIVE: CASE EVENT DATE: 2016
